FAERS Safety Report 8376846-4 (Version None)
Quarter: 2012Q2

REPORT INFORMATION
  Report Type: 
  Country: None (occurrence: None)
  Receive Date: 20120522
  Receipt Date: 20120515
  Transmission Date: 20120825
  Serious: Yes (Other)
  Sender: FDA-Public Use
  Company Number: US-JNJFOC-20120513551

PATIENT
  Sex: Female
  Weight: 51.71 kg

DRUGS (1)
  1. SIMPONI [Suspect]
     Indication: RHEUMATOID ARTHRITIS
     Route: 058
     Dates: start: 20120112

REACTIONS (8)
  - ABNORMAL LOSS OF WEIGHT [None]
  - FEELING COLD [None]
  - DEVICE MALFUNCTION [None]
  - TINEA PEDIS [None]
  - ONYCHOMADESIS [None]
  - SINUSITIS [None]
  - DRUG DOSE OMISSION [None]
  - COUGH [None]
